FAERS Safety Report 23721879 (Version 1)
Quarter: 2024Q2

REPORT INFORMATION
  Report Type: Spontaneous
  Country: PL (occurrence: PL)
  Receive Date: 20240409
  Receipt Date: 20240409
  Transmission Date: 20240715
  Serious: Yes (Hospitalization, Other)
  Sender: FDA-Public Use
  Company Number: PL-Accord-417614

PATIENT
  Age: 45 Year
  Sex: Female

DRUGS (1)
  1. CYANOCOBALAMIN [Suspect]
     Active Substance: CYANOCOBALAMIN
     Route: 030
     Dates: start: 202011

REACTIONS (2)
  - Intentional overdose [Unknown]
  - Bipolar disorder [Recovered/Resolved with Sequelae]

NARRATIVE: CASE EVENT DATE: 20201101
